FAERS Safety Report 7210554-8 (Version None)
Quarter: 2011Q1

REPORT INFORMATION
  Report Type: 
  Country: None (occurrence: None)
  Receive Date: 20110105
  Receipt Date: 20110103
  Transmission Date: 20110831
  Serious: Yes (Disabling)
  Sender: FDA-Public Use
  Company Number: MA-ROCHE-751198

PATIENT
  Age: 32 Year
  Sex: Female
  Weight: 85 kg

DRUGS (3)
  1. AVASTIN [Suspect]
     Route: 042
     Dates: start: 20100402, end: 20101130
  2. AVASTIN [Suspect]
     Route: 042
  3. DOCETAXEL [Suspect]
     Route: 042
     Dates: start: 20100402, end: 20100808

REACTIONS (1)
  - COUGH [None]
